FAERS Safety Report 22247592 (Version 1)
Quarter: 2023Q2

REPORT INFORMATION
  Report Type: Spontaneous
  Country: US (occurrence: US)
  Receive Date: 20230425
  Receipt Date: 20230425
  Transmission Date: 20230721
  Serious: No
  Sender: FDA-Public Use
  Company Number: US-TOPROL-2022000142

PATIENT
  Age: 72 Year
  Sex: Female

DRUGS (1)
  1. METOPROLOL SUCCINATE [Suspect]
     Active Substance: METOPROLOL SUCCINATE
     Indication: Hypertension
     Dosage: 50 MG TABLET
     Route: 065

REACTIONS (2)
  - Prescription drug used without a prescription [Not Recovered/Not Resolved]
  - Off label use [Not Recovered/Not Resolved]
